FAERS Safety Report 9541858 (Version 2)
Quarter: 2013Q3

REPORT INFORMATION
  Report Type: Spontaneous
  Country: JP (occurrence: JP)
  Receive Date: 20130923
  Receipt Date: 20130923
  Transmission Date: 20140515
  Serious: Yes (Hospitalization)
  Sender: FDA-Public Use
  Company Number: PHHY2013JP071517

PATIENT
  Age: 91 Year
  Sex: Female

DRUGS (3)
  1. EXELON PATCH [Suspect]
     Indication: DEMENTIA
     Dosage: 13.5 MG, DAILY
     Route: 062
     Dates: end: 20130724
  2. EXELON PATCH [Suspect]
     Dosage: 4.5 MG, DAILY
     Route: 062
     Dates: start: 20130725, end: 20130810
  3. EXELON PATCH [Suspect]
     Dosage: 9 MG, DAILY
     Route: 062
     Dates: start: 20130811

REACTIONS (2)
  - Femur fracture [Unknown]
  - Nausea [Recovered/Resolved]
